FAERS Safety Report 10906204 (Version 1)
Quarter: 2015Q1

REPORT INFORMATION
  Report Type: Spontaneous
  Country: US (occurrence: US)
  Receive Date: 20150311
  Receipt Date: 20150311
  Transmission Date: 20150721
  Serious: Yes (Hospitalization)
  Sender: FDA-Public Use
  Company Number: US-ACTELION-A-NJ2015-114059

PATIENT
  Age: 66 Year
  Sex: Male

DRUGS (1)
  1. OPSUMIT [Suspect]
     Active Substance: MACITENTAN
     Indication: PRODUCT USED FOR UNKNOWN INDICATION
     Dosage: 10 MG, QD
     Route: 048
     Dates: start: 20140514

REACTIONS (3)
  - Respiratory distress [Not Recovered/Not Resolved]
  - Peau d^orange [Not Recovered/Not Resolved]
  - Fluid overload [Not Recovered/Not Resolved]

NARRATIVE: CASE EVENT DATE: 20150226
